FAERS Safety Report 9059606 (Version 1)
Quarter: 2013Q1

REPORT INFORMATION
  Report Type: Spontaneous
  Country: GR (occurrence: GR)
  Receive Date: 20130212
  Receipt Date: 20130212
  Transmission Date: 20140127
  Serious: Yes (Hospitalization, Other)
  Sender: FDA-Public Use
  Company Number: GR-PAR PHARMACEUTICAL, INC-2013SCPR005547

PATIENT
  Sex: 0

DRUGS (2)
  1. RISPERIDONE [Suspect]
     Indication: PSYCHOMOTOR SKILLS IMPAIRED
     Dosage: UNK, UNKNOWN
     Route: 065
  2. SODIUM VALPROATE [Suspect]
     Indication: EPILEPSY
     Dosage: UNK, UNKNOWN
     Route: 065

REACTIONS (1)
  - Lupus-like syndrome [Recovered/Resolved]
